FAERS Safety Report 4970516-8 (Version None)
Quarter: 2006Q2

REPORT INFORMATION
  Report Type: 
  Country: None (occurrence: None)
  Receive Date: 20060412
  Receipt Date: 20060331
  Transmission Date: 20061013
  Serious: Yes (Hospitalization)
  Sender: FDA-Public Use
  Company Number: PHHO2006US05433

PATIENT
  Sex: Male
  Weight: 109.5 kg

DRUGS (7)
  1. LOTREL [Suspect]
     Indication: HYPERTENSION
     Dosage: LEVEL 1
     Route: 048
  2. LOTREL [Suspect]
     Dosage: LEVEL 3
     Route: 048
     Dates: start: 20050628, end: 20060327
  3. COSOPT [Suspect]
  4. KETOROLAC [Suspect]
  5. ALLOPURINOL [Suspect]
     Dosage: 300 MG, UNK
     Route: 048
  6. OFLOXACIN [Suspect]
  7. PREDNISOLONE [Suspect]

REACTIONS (10)
  - ANGIONEUROTIC OEDEMA [None]
  - DRUG HYPERSENSITIVITY [None]
  - DYSPNOEA [None]
  - GOUT [None]
  - LENS IMPLANT [None]
  - PLEURISY [None]
  - RESPIRATORY DISORDER [None]
  - SWELLING FACE [None]
  - SWOLLEN TONGUE [None]
  - URTICARIA [None]
